FAERS Safety Report 5576459-3 (Version None)
Quarter: 2007Q4

REPORT INFORMATION
  Report Type: 
  Country: None (occurrence: None)
  Receive Date: 20071228
  Receipt Date: 20071219
  Transmission Date: 20080405
  Serious: Yes (Other)
  Sender: FDA-Public Use
  Company Number: GB-ASTRAZENECA-2007GB02613

PATIENT

DRUGS (1)
  1. BUPIVACAINE [Suspect]
     Indication: ANAESTHESIA
     Route: 065
     Dates: start: 20071130

REACTIONS (2)
  - DRUG INEFFECTIVE [None]
  - ILL-DEFINED DISORDER [None]
